FAERS Safety Report 10289421 (Version 1)
Quarter: 2014Q3

REPORT INFORMATION
  Report Type: Spontaneous
  Country: GR (occurrence: GR)
  Receive Date: 20140710
  Receipt Date: 20140710
  Transmission Date: 20150326
  Serious: Yes (Hospitalization)
  Sender: FDA-Public Use
  Company Number: PHHY2014GR083074

PATIENT
  Sex: Female

DRUGS (6)
  1. FLUTICASONE PROPIONATE. [Suspect]
     Active Substance: FLUTICASONE PROPIONATE
     Dosage: MATERNAL DOSE: 250 MCG TWICE PER DAY
  2. METHYLPREDNISOLONE [Suspect]
     Active Substance: METHYLPREDNISOLONE
     Dosage: MATERNAL DOSE: 4 MG TWICE DAILY
  3. SALBUTAMOL [Suspect]
     Active Substance: ALBUTEROL
     Dosage: MATERNAL DOSE: 200 MCG 3 TIMES A DAY
  4. AZATHIOPRINE. [Suspect]
     Active Substance: AZATHIOPRINE
     Dosage: MATERNAL DOSE: 125 MG/DAY
  5. BETAMETHASONE [Suspect]
     Active Substance: BETAMETHASONE
     Dosage: MATERNAL DOSE: TWO DOSES OF 12 MG
  6. NADROPARIN [Suspect]
     Active Substance: NADROPARIN
     Dosage: MATERNAL DOSE

REACTIONS (5)
  - Low birth weight baby [Unknown]
  - Foetal growth restriction [Unknown]
  - Breech presentation [Unknown]
  - Premature baby [Unknown]
  - Foetal exposure during pregnancy [Unknown]
